FAERS Safety Report 5148185-6 (Version None)
Quarter: 2006Q4

REPORT INFORMATION
  Report Type: 
  Country: None (occurrence: None)
  Receive Date: 20061110
  Receipt Date: 20060306
  Transmission Date: 20070319
  Serious: Yes (Hospitalization)
  Sender: FDA-Public Use
  Company Number: US-ELI_LILLY_AND_COMPANY-US200605005379

PATIENT
  Age: 59 Year
  Sex: Male
  Weight: 81.632 kg

DRUGS (5)
  1. ZYPREXA [Suspect]
     Indication: DEPRESSION
     Dosage: 7.5 MG, UNK
     Dates: start: 19970601, end: 20060201
  2. ZYPREXA [Suspect]
     Dosage: 10 MG, UNK
  3. ZYPREXA [Suspect]
     Dosage: 15 MG, UNK
  4. DOXEPIN HCL [Concomitant]
     Dates: start: 19970101
  5. FLUOXETINE                              /N/A/ [Concomitant]
     Dates: start: 19960101

REACTIONS (4)
  - DIABETES MELLITUS [None]
  - HYPERGLYCAEMIA [None]
  - HYPERTENSION [None]
  - RENAL FAILURE [None]
